FAERS Safety Report 15266943 (Version 1)
Quarter: 2018Q4

REPORT INFORMATION
  Report Type: Report from Study
  Country: CA (occurrence: CA)
  Receive Date: 20180810
  Receipt Date: 20180810
  Transmission Date: 20190204
  Serious: Yes (Death)
  Sender: FDA-Public Use
  Company Number: CA-TAIHO ONCOLOGY  INC-EU-2018-00733

PATIENT
  Age: 56 Year
  Sex: Male
  Weight: 86.36 kg

DRUGS (1)
  1. LONSURF [Suspect]
     Active Substance: TIPIRACIL HYDROCHLORIDE\TRIFLURIDINE
     Dosage: CYCLE 2 STARTED ON 06APR2018
     Route: 048
     Dates: start: 20180309, end: 20180503

REACTIONS (2)
  - Disease progression [Fatal]
  - Cytopenia [Unknown]

NARRATIVE: CASE EVENT DATE: 2018
